FAERS Safety Report 21096045 (Version 2)
Quarter: 2022Q3

REPORT INFORMATION
  Report Type: Spontaneous
  Country: US (occurrence: US)
  Receive Date: 20220718
  Receipt Date: 20220914
  Transmission Date: 20221026
  Serious: No
  Sender: FDA-Public Use
  Company Number: US-BRISTOL-MYERS SQUIBB COMPANY-2022-074184

PATIENT
  Age: 73 Year
  Sex: Female

DRUGS (2)
  1. REVLIMID [Suspect]
     Active Substance: LENALIDOMIDE
     Indication: Plasma cell myeloma
     Dosage: FREQ - TAKE 1 CAPSULE BY MOUTH WHOLE WITH WATER EVERY DAY DO NOT BREAK,CHEW OR OPEN
     Route: 048
  2. REVLIMID [Suspect]
     Active Substance: LENALIDOMIDE
     Dosage: FREQ - TAKE 1 CAPSULE BY MOUTH WHOLE WITH WATER EVERY DAY DO NOT BREAK,CHEW OR OPEN
     Route: 048
     Dates: start: 20220107

REACTIONS (2)
  - Rash [Recovered/Resolved]
  - Product dose omission issue [Unknown]
